FAERS Safety Report 5368650-6 (Version None)
Quarter: 2007Q2

REPORT INFORMATION
  Report Type: 
  Country: None (occurrence: None)
  Receive Date: 20070625
  Receipt Date: 20070614
  Transmission Date: 20071010
  Serious: Yes (Hospitalization, Other)
  Sender: FDA-Public Use
  Company Number: GB-AMGEN-UK226325

PATIENT
  Sex: Male
  Weight: 90 kg

DRUGS (3)
  1. ARANESP [Suspect]
     Indication: RENAL FAILURE CHRONIC
     Route: 042
     Dates: start: 20061101
  2. CYCLOPHOSPHAMIDE [Suspect]
     Route: 042
     Dates: start: 20070404
  3. VENOFER [Concomitant]
     Route: 042
     Dates: start: 20070301

REACTIONS (4)
  - DRUG HYPERSENSITIVITY [None]
  - DUODENITIS [None]
  - HAEMOGLOBIN DECREASED [None]
  - THERAPEUTIC RESPONSE DECREASED [None]
